FAERS Safety Report 8109716-7 (Version None)
Quarter: 2012Q1

REPORT INFORMATION
  Report Type: 
  Country: None (occurrence: None)
  Receive Date: 20120202
  Receipt Date: 20120126
  Transmission Date: 20120608
  Serious: Yes (Other)
  Sender: FDA-Public Use
  Company Number: US-B.I. PHARMACEUTICALS,INC./RIDGEFIELD-2012-BP-01875BP

PATIENT
  Sex: Male
  Weight: 81.65 kg

DRUGS (3)
  1. FLOMAX [Suspect]
     Indication: PROSTATOMEGALY
     Dosage: 0.8 MG
     Route: 048
  2. PRILOSEC [Concomitant]
     Indication: DYSPEPSIA
     Dosage: 20 MG
     Route: 048
  3. CELEBREX [Suspect]
     Indication: LIMB INJURY
     Dosage: 200 MG
     Route: 048

REACTIONS (2)
  - PROSTATE CANCER [None]
  - DRUG INEFFECTIVE [None]
